FAERS Safety Report 11808250 (Version 1)
Quarter: 2015Q4

REPORT INFORMATION
  Report Type: Spontaneous
  Country: JP (occurrence: JP)
  Receive Date: 20151207
  Receipt Date: 20151207
  Transmission Date: 20160305
  Serious: Yes (Other)
  Sender: FDA-Public Use
  Company Number: JP-BAYER-2015-478820

PATIENT

DRUGS (2)
  1. BAYASPIRIN [Suspect]
     Active Substance: ASPIRIN
     Dosage: 100 MG, QD
     Route: 048
  2. BAYASPIRIN [Suspect]
     Active Substance: ASPIRIN
     Dosage: 200 MG, QD
     Route: 048

REACTIONS (1)
  - Cerebral infarction [None]
